FAERS Safety Report 5233596-0 (Version None)
Quarter: 2007Q1

REPORT INFORMATION
  Report Type: 
  Country: None (occurrence: None)
  Receive Date: 20070208
  Receipt Date: 20070129
  Transmission Date: 20070707
  Serious: Yes (Other)
  Sender: FDA-Public Use
  Company Number: PHEH2007US01439

PATIENT
  Age: 27 Year
  Sex: Female

DRUGS (1)
  1. ZELNORM [Suspect]
     Indication: IRRITABLE BOWEL SYNDROME
     Dosage: UNK, UNK
     Dates: start: 20061113, end: 20061114

REACTIONS (8)
  - ARTHRALGIA [None]
  - DEAFNESS [None]
  - DIZZINESS [None]
  - EAR PAIN [None]
  - EYE INFLAMMATION [None]
  - HYPERSENSITIVITY [None]
  - LABYRINTHITIS [None]
  - URTICARIA [None]
